FAERS Safety Report 11320010 (Version 1)
Quarter: 2015Q3

REPORT INFORMATION
  Report Type: Spontaneous
  Country: US (occurrence: None)
  Receive Date: 20150728
  Receipt Date: 20150728
  Transmission Date: 20151125
  Serious: Yes (Hospitalization)
  Sender: FDA-Public Use
  Company Number: None

PATIENT
  Age: 44 Year
  Sex: Female
  Weight: 90.72 kg

DRUGS (3)
  1. INVOKANA [Suspect]
     Active Substance: CANAGLIFLOZIN
     Indication: TYPE 2 DIABETES MELLITUS
     Dosage: 1 PILL
     Route: 048
     Dates: start: 20140917, end: 20140929
  2. INSULIN [Concomitant]
     Active Substance: INSULIN NOS
  3. VICTOZA [Concomitant]
     Active Substance: LIRAGLUTIDE

REACTIONS (12)
  - Dysstasia [None]
  - Confusional state [None]
  - Thirst [None]
  - Weight decreased [None]
  - Vomiting [None]
  - Diabetic ketoacidosis [None]
  - Pollakiuria [None]
  - Dyspepsia [None]
  - Dyspnoea [None]
  - Asthenia [None]
  - Fatigue [None]
  - Nausea [None]

NARRATIVE: CASE EVENT DATE: 20140930
